FAERS Safety Report 15711254 (Version 4)
Quarter: 2021Q1

REPORT INFORMATION
  Report Type: Spontaneous
  Country: US (occurrence: US)
  Receive Date: 20181211
  Receipt Date: 20210102
  Transmission Date: 20210419
  Serious: Yes (Hospitalization, Other)
  Sender: FDA-Public Use
  Company Number: PHEH2018US052342

PATIENT
  Sex: Female

DRUGS (2)
  1. GLEEVEC [Suspect]
     Active Substance: IMATINIB MESYLATE
     Indication: CHRONIC MYELOID LEUKAEMIA
     Dosage: 400 MG, QD
     Route: 048
     Dates: start: 2016
  2. TASIGNA [Suspect]
     Active Substance: NILOTINIB
     Indication: CHRONIC MYELOID LEUKAEMIA
     Dosage: 300 MG, BID
     Route: 048
     Dates: start: 20131017, end: 20160811

REACTIONS (8)
  - Emotional distress [Unknown]
  - Anxiety [Unknown]
  - Cerebrovascular accident [Unknown]
  - Pain [Unknown]
  - Cerebellar stroke [Unknown]
  - Injury [Unknown]
  - Abdominal pain [Unknown]
  - Sleep disorder [Unknown]
